FAERS Safety Report 21217440 (Version 1)
Quarter: 2022Q3

REPORT INFORMATION
  Report Type: Spontaneous
  Country: US (occurrence: US)
  Receive Date: 20220816
  Receipt Date: 20220816
  Transmission Date: 20221027
  Serious: Yes (Hospitalization)
  Sender: FDA-Public Use
  Company Number: US-BIAL-BIAL-10778

PATIENT

DRUGS (4)
  1. ONGENTYS [Suspect]
     Active Substance: OPICAPONE
     Indication: Parkinson^s disease
     Dosage: 50 MILLIGRAM, 1X / DAY
     Route: 065
  2. CARBIDOPA\LEVODOPA [Concomitant]
     Active Substance: CARBIDOPA\LEVODOPA
     Indication: Parkinson^s disease
     Dosage: 48.75/195 MG 7 CAPSULES DAILY
     Route: 065
  3. ROPINIROLE HYDROCHLORIDE [Concomitant]
     Active Substance: ROPINIROLE HYDROCHLORIDE
     Indication: Parkinson^s disease
     Dosage: 2 MILLIGRAM, 1X / DAY
     Route: 065
  4. RASAGILINE TARTRATE [Concomitant]
     Active Substance: RASAGILINE TARTRATE
     Indication: Parkinson^s disease
     Dosage: 0.5 MILLIGRAM, 1X / DAY
     Route: 065

REACTIONS (1)
  - Akathisia [Recovered/Resolved]
